FAERS Safety Report 5402250-4 (Version None)
Quarter: 2007Q3

REPORT INFORMATION
  Report Type: 
  Country: None (occurrence: None)
  Receive Date: 20070801
  Receipt Date: 20070723
  Transmission Date: 20080115
  Serious: Yes (Hospitalization)
  Sender: FDA-Public Use
  Company Number: TW-JNJFOC-20070704965

PATIENT
  Age: 21 Year
  Sex: Male

DRUGS (8)
  1. HALDOL [Suspect]
  2. HALDOL [Suspect]
     Indication: PSYCHOTIC DISORDER
  3. CLONAZEPAM [Concomitant]
     Indication: DRUG USE FOR UNKNOWN INDICATION
  4. VALPORIC ACID [Concomitant]
     Indication: DRUG USE FOR UNKNOWN INDICATION
  5. CLOTHIAPINE [Concomitant]
     Indication: DRUG USE FOR UNKNOWN INDICATION
  6. LORAZEPAM [Concomitant]
     Indication: SEDATION
     Route: 030
  7. PAROXITINE [Concomitant]
  8. BENZODIAZEPINE [Concomitant]

REACTIONS (1)
  - HYPERTHYROIDISM [None]
